FAERS Safety Report 9268081 (Version 1)
Quarter: 2013Q2

REPORT INFORMATION
  Report Type: Report from Study
  Country: US (occurrence: US)
  Receive Date: 20130502
  Receipt Date: 20130502
  Transmission Date: 20140414
  Serious: Yes (Hospitalization, Other)
  Sender: FDA-Public Use
  Company Number: US-ALEXION-A201201541

PATIENT
  Age: 73 Year
  Sex: Female
  Weight: 84.35 kg

DRUGS (18)
  1. SOLIRIS [Suspect]
     Indication: HAEMOLYTIC URAEMIC SYNDROME
     Dosage: 900 MG, SINGLE
     Route: 042
     Dates: start: 201204
  2. SOLIRIS [Suspect]
     Dosage: 900 MG, Q2W
     Route: 042
     Dates: start: 20120815
  3. BELATACEPT [Suspect]
     Indication: IMMUNOSUPPRESSANT DRUG THERAPY
     Dosage: 400 MG Q15D
     Route: 042
     Dates: start: 20120716, end: 20120813
  4. AMLODIPINE [Concomitant]
     Indication: HYPERTENSION
     Dosage: 5 MG, QD
     Route: 048
  5. ASA [Concomitant]
     Indication: PROPHYLAXIS
     Dosage: 81 MG, QD
     Route: 048
  6. AZATHIOPRINE [Concomitant]
     Indication: IMMUNOSUPPRESSANT DRUG THERAPY
     Dosage: 150 MG, QD
     Route: 048
  7. CARDURA [Concomitant]
     Indication: HYPERTENSION
     Dosage: 4 MG, QD HS
     Route: 048
  8. FISH OIL [Concomitant]
     Indication: BLOOD CHOLESTEROL
     Dosage: 2 DF, QD
     Route: 048
  9. LASIX [Concomitant]
     Indication: OEDEMA PERIPHERAL
     Dosage: 80 MG, TID
     Route: 048
  10. NOVOLOG [Concomitant]
     Indication: TYPE 1 DIABETES MELLITUS
     Dosage: SLIDING SCALE
     Route: 058
  11. LANTUS [Concomitant]
     Indication: TYPE 1 DIABETES MELLITUS
     Dosage: 50 IU, QD AM
     Route: 058
  12. METOPROLOL [Concomitant]
     Indication: HYPERTENSION
     Dosage: 12.5 MG, BID
     Route: 048
  13. PRILOSEC [Concomitant]
     Indication: GASTROOESOPHAGEAL REFLUX DISEASE
     Dosage: 20 MG, QD
     Route: 048
  14. PREDNISONE [Concomitant]
     Indication: PROPHYLAXIS AGAINST TRANSPLANT REJECTION
     Dosage: 5 MG, QD
     Route: 048
  15. BACTRIM [Concomitant]
     Indication: ANTIBIOTIC THERAPY
     Dosage: 800 MG, QD MONDAY, WEDNESDAY, FRIDAY
     Route: 048
  16. URSODIOL [Concomitant]
     Indication: BLADDER DISORDER
     Dosage: 300 MG, TID
     Route: 048
  17. VITAMIN D [Concomitant]
     Indication: OSTEOPOROSIS PROPHYLAXIS
     Dosage: 2000 MG, QD
     Route: 048
  18. AMBIEN [Concomitant]
     Indication: SLEEP DISORDER
     Dosage: 10 MG, QD HS
     Route: 048

REACTIONS (2)
  - Renal failure acute [Recovering/Resolving]
  - Thrombotic microangiopathy [Unknown]
